FAERS Safety Report 7679040-5 (Version None)
Quarter: 2011Q3

REPORT INFORMATION
  Report Type: 
  Country: None (occurrence: None)
  Receive Date: 20110812
  Receipt Date: 20110803
  Transmission Date: 20111222
  Serious: Yes (Hospitalization)
  Sender: FDA-Public Use
  Company Number: 2005BI001120

PATIENT
  Sex: Female
  Weight: 63 kg

DRUGS (8)
  1. AVONEX [Suspect]
     Indication: MULTIPLE SCLEROSIS
     Route: 030
     Dates: start: 20000222, end: 20040301
  2. AVONEX [Suspect]
     Route: 030
     Dates: start: 20040701
  3. DETROL [Concomitant]
     Indication: BLADDER DISORDER
  4. ALBUTEROL SULFATE AUTOHALER [Concomitant]
  5. DEPAKOTE [Concomitant]
  6. EFFEXOR [Concomitant]
     Indication: DEPRESSION
  7. DILANTIN [Concomitant]
     Indication: CONVULSION
  8. AVONEX [Suspect]
     Route: 030
     Dates: start: 20040831

REACTIONS (2)
  - GRAND MAL CONVULSION [None]
  - VISUAL IMPAIRMENT [None]
